FAERS Safety Report 5905078-1 (Version None)
Quarter: 2008Q3

REPORT INFORMATION
  Report Type: 
  Country: None (occurrence: None)
  Receive Date: 20080909
  Receipt Date: 20071226
  Transmission Date: 20090109
  Serious: Yes (Death)
  Sender: FDA-Public Use
  Company Number: 163-20785-07110132

PATIENT
  Age: 58 Year
  Sex: Male

DRUGS (5)
  1. THALOMID [Suspect]
     Indication: MULTIPLE MYELOMA
     Dosage: 200 MG, 4 IN 1 D, ORAL
     Route: 048
     Dates: start: 20070626, end: 20071025
  2. LORTAB [Concomitant]
  3. MS CONTIN [Concomitant]
  4. IBUPROFEN [Concomitant]
  5. DECADRON [Concomitant]

REACTIONS (1)
  - ARRHYTHMIA [None]
